FAERS Safety Report 13916717 (Version 2)
Quarter: 2017Q3

REPORT INFORMATION
  Report Type: Spontaneous
  Country: US (occurrence: US)
  Receive Date: 20170829
  Receipt Date: 20170919
  Transmission Date: 20171127
  Serious: Yes (Life-Threatening, Hospitalization, Other)
  Sender: FDA-Public Use
  Company Number: US-ASTRAZENECA-2017SE86976

PATIENT
  Age: 757 Month
  Sex: Female
  Weight: 45.4 kg

DRUGS (1)
  1. PULMICORT FLEXHALER [Suspect]
     Active Substance: BUDESONIDE
     Indication: DYSPNOEA
     Route: 055
     Dates: start: 201708

REACTIONS (11)
  - Drug dose omission [Unknown]
  - Off label use [Unknown]
  - Product taste abnormal [Unknown]
  - Stress cardiomyopathy [Unknown]
  - Product use issue [Not Recovered/Not Resolved]
  - Device failure [Unknown]
  - Intentional device misuse [Unknown]
  - Dyspnoea [Not Recovered/Not Resolved]
  - Pulmonary oedema [Unknown]
  - Dizziness [Not Recovered/Not Resolved]
  - Product use in unapproved indication [Unknown]

NARRATIVE: CASE EVENT DATE: 201708
